FAERS Safety Report 23760838 (Version 1)
Quarter: 2024Q2

REPORT INFORMATION
  Report Type: Spontaneous
  Country: ZA (occurrence: None)
  Receive Date: 20240419
  Receipt Date: 20240419
  Transmission Date: 20240716
  Serious: Yes (Hospitalization)
  Sender: FDA-Public Use
  Company Number: 2024A090500

PATIENT
  Sex: Female

DRUGS (6)
  1. DAPAGLIFLOZIN [Suspect]
     Active Substance: DAPAGLIFLOZIN
     Indication: Type 2 diabetes mellitus
     Route: 048
  2. LIPOGEN [Concomitant]
     Indication: Blood cholesterol
  3. ECOTRIN [Concomitant]
     Active Substance: ASPIRIN
     Indication: Coagulopathy
  4. TOUJEO [Concomitant]
     Active Substance: INSULIN GLARGINE
     Indication: Blood insulin
  5. GLUCOPHAGE XR [Concomitant]
     Active Substance: METFORMIN HYDROCHLORIDE
     Indication: Type 2 diabetes mellitus
  6. LOSARTAN POTASSIUM [Concomitant]
     Active Substance: LOSARTAN POTASSIUM
     Indication: Hypertension

REACTIONS (1)
  - Accident [Unknown]
